FAERS Safety Report 6249393-3 (Version None)
Quarter: 2009Q2

REPORT INFORMATION
  Report Type: 
  Country: None (occurrence: None)
  Receive Date: 20090629
  Receipt Date: 20090622
  Transmission Date: 20091009
  Serious: Yes (Other)
  Sender: FDA-Public Use
  Company Number: US-BIOGENIDEC-2009BI019065

PATIENT
  Age: 52 Year
  Sex: Female
  Weight: 66 kg

DRUGS (4)
  1. AVONEX [Suspect]
     Indication: MULTIPLE SCLEROSIS
     Route: 030
     Dates: start: 19990101, end: 20030801
  2. AVONEX [Suspect]
     Route: 030
     Dates: start: 20030801
  3. ASPIRIN [Concomitant]
     Indication: PREMEDICATION
  4. ZOLOFT [Concomitant]
     Indication: DEPRESSION

REACTIONS (3)
  - BREAST CANCER [None]
  - HEADACHE [None]
  - INJECTION SITE PAIN [None]
